FAERS Safety Report 5310415-5 (Version None)
Quarter: 2007Q2

REPORT INFORMATION
  Report Type: 
  Country: None (occurrence: None)
  Receive Date: 20070427
  Receipt Date: 20070417
  Transmission Date: 20071010
  Serious: Yes (Hospitalization)
  Sender: FDA-Public Use
  Company Number: RU-JNJFOC-20060806386

PATIENT
  Sex: Male
  Weight: 67 kg

DRUGS (1)
  1. INFLIXIMAB [Suspect]
     Indication: ANKYLOSING SPONDYLITIS
     Route: 042

REACTIONS (3)
  - PNEUMONIA [None]
  - PULMONARY TUBERCULOSIS [None]
  - TUBERCULOSIS [None]
